FAERS Safety Report 6112267-2 (Version None)
Quarter: 2009Q1

REPORT INFORMATION
  Report Type: 
  Country: None (occurrence: None)
  Receive Date: 20090310
  Receipt Date: 20081202
  Transmission Date: 20090719
  Serious: Yes (Other)
  Sender: FDA-Public Use
  Company Number: 2008S1021513

PATIENT
  Age: 64 Year
  Sex: Female

DRUGS (2)
  1. ENDEP [Suspect]
     Indication: DEPRESSION
     Dosage: 25 MG, DAILY, ORAL
     Route: 048
     Dates: start: 20020101
  2. ZOMIG [Concomitant]

REACTIONS (3)
  - FEELING HOT [None]
  - NAUSEA [None]
  - SYNCOPE [None]
